FAERS Safety Report 5712990-5 (Version None)
Quarter: 2008Q2

REPORT INFORMATION
  Report Type: 
  Country: None (occurrence: None)
  Receive Date: 20080418
  Receipt Date: 20080404
  Transmission Date: 20081010
  Serious: Yes (Other)
  Sender: FDA-Public Use
  Company Number: 025895

PATIENT
  Age: 38 Year
  Sex: Female
  Weight: 61.2 kg

DRUGS (1)
  1. CLARAVIS [Suspect]
     Indication: ACNE
     Dosage: 40 MG, BID, ORAL
     Route: 048
     Dates: start: 20071217, end: 20080403

REACTIONS (6)
  - ARTHRALGIA [None]
  - EYE PAIN [None]
  - HEADACHE [None]
  - MOVEMENT DISORDER [None]
  - MYALGIA [None]
  - RETINAL OEDEMA [None]
